FAERS Safety Report 9788083 (Version 2)
Quarter: 2013Q4

REPORT INFORMATION
  Report Type: Spontaneous
  Country: GB (occurrence: GB)
  Receive Date: 20131230
  Receipt Date: 20131230
  Transmission Date: 20140711
  Serious: Yes (Death)
  Sender: FDA-Public Use
  Company Number: GB-ASTRAZENECA-2013SE89873

PATIENT
  Sex: Male

DRUGS (1)
  1. PALIVIZUMAB [Suspect]
     Dosage: FIVE DOSES
     Route: 030

REACTIONS (1)
  - Respiratory syncytial virus test positive [Fatal]
